FAERS Safety Report 16451487 (Version 2)
Quarter: 2019Q3

REPORT INFORMATION
  Report Type: Report from Study
  Country: GB (occurrence: GB)
  Receive Date: 20190619
  Receipt Date: 20190702
  Transmission Date: 20191004
  Serious: Yes (Death)
  Sender: FDA-Public Use
  Company Number: GB-PFIZER INC-2019257720

PATIENT

DRUGS (1)
  1. SOMATROPIN. [Suspect]
     Active Substance: SOMATROPIN
     Indication: GROWTH HORMONE DEFICIENCY
     Dosage: 1.3 MG 5 DAYS A WEEK, 1.4 MG ON SAT/SUN
     Route: 065
     Dates: start: 20120622, end: 20190529

REACTIONS (2)
  - Death [Fatal]
  - Feeling abnormal [Unknown]
